FAERS Safety Report 8587663 (Version 5)
Quarter: 2013Q1

REPORT INFORMATION
  Report Type: Spontaneous
  Country: US (occurrence: None)
  Receive Date: 20120523
  Receipt Date: 20130219
  Transmission Date: 20140127
  Serious: Yes (Hospitalization, Other)
  Sender: FDA-Public Use
  Company Number: 2012-001799

PATIENT
  Age: 77 Year
  Sex: Female

DRUGS (20)
  1. ACTONEL (RISEDRONATE SODIUM) TABLET [Suspect]
     Indication: OSTEOPENIA
     Route: 048
     Dates: start: 20100310, end: 201006
  2. ACTONEL (RISEDRONATE SODIUM) TABLET [Suspect]
     Indication: OSTEOPOROSIS
     Route: 048
     Dates: start: 20100310, end: 201006
  3. FOSAMAX [Suspect]
     Indication: OSTEOPOROSIS
     Dosage: ORAL
     Route: 048
     Dates: start: 200404, end: 201003
  4. FOSAMAX [Suspect]
     Indication: OSTEOPENIA
     Dosage: ORAL
     Route: 048
     Dates: start: 200404, end: 201003
  5. FOSAMAX PLUS D [Suspect]
     Indication: OSTEOPOROSIS
     Dosage: ORAL
     Route: 048
  6. FOSAMAX PLUS D [Suspect]
     Indication: OSTEOPENIA
     Dosage: ORAL
     Route: 048
  7. ALENDRONATE SODIUM [Suspect]
     Indication: OSTEOPENIA
     Dosage: ORAL
     Route: 048
     Dates: start: 200902, end: 201002
  8. ALENDRONATE SODIUM [Suspect]
     Indication: OSTEOPOROSIS
     Dosage: ORAL
     Route: 048
     Dates: start: 200902, end: 201002
  9. PLAVIX (CLOPIDOGREL BISULFATE) [Concomitant]
  10. DILTIAZEM ER (DILTIAZEM HYDROCHLORIDE) [Concomitant]
  11. FUROSEMIDE (FUROSEMIDE) [Concomitant]
  12. RAMIPRIL (RAMIPRIL) [Concomitant]
  13. SIMVASTATIN (SIMVASTATIN) [Concomitant]
  14. LEVOXYL (LEVOTHYROXINE SODIUM) [Concomitant]
  15. LUNESTA (ESZOPICLONE) [Concomitant]
  16. KRISTALOSE (LACTULOSE) [Concomitant]
  17. ASMANEX [Concomitant]
  18. NAPROSYN (NAPROXEN) [Concomitant]
  19. KENALOG [Concomitant]
  20. ALLERGEN EXTRACTS [Concomitant]

REACTIONS (11)
  - Low turnover osteopathy [None]
  - Skeletal injury [None]
  - Toxicity to various agents [None]
  - Pain [None]
  - Pathological fracture [None]
  - Femur fracture [None]
  - Jaw disorder [None]
  - Fall [None]
  - Fracture displacement [None]
  - Gingival bleeding [None]
  - Device related infection [None]
